FAERS Safety Report 9346475 (Version 1)
Quarter: 2013Q2

REPORT INFORMATION
  Report Type: Spontaneous
  Country: CA (occurrence: CA)
  Receive Date: 20130613
  Receipt Date: 20130613
  Transmission Date: 20140414
  Serious: Yes (Hospitalization, Other)
  Sender: FDA-Public Use
  Company Number: CA-JNJFOC-20130505689

PATIENT
  Sex: Male

DRUGS (15)
  1. XARELTO [Suspect]
     Indication: EMBOLISM VENOUS
     Route: 048
  2. XARELTO [Suspect]
     Indication: EMBOLISM VENOUS
     Route: 048
     Dates: start: 20130503
  3. XARELTO [Suspect]
     Indication: DEEP VEIN THROMBOSIS
     Route: 048
  4. XARELTO [Suspect]
     Indication: DEEP VEIN THROMBOSIS
     Route: 048
     Dates: start: 20130503
  5. HYDROMORPHONE [Concomitant]
     Indication: DYSPNOEA
     Dosage: AS NECESSARY
     Route: 065
  6. SYMBICORT [Concomitant]
     Route: 065
  7. SPIRIVA [Concomitant]
     Route: 055
  8. FUROSEMIDE [Concomitant]
     Route: 065
  9. PANTOLOC [Concomitant]
     Route: 048
  10. GLYBURIDE [Concomitant]
     Route: 048
  11. CYMBALTA [Concomitant]
     Route: 048
  12. ZOPLICONE [Concomitant]
     Route: 048
  13. PEG [Concomitant]
     Route: 065
  14. SENOKOT [Concomitant]
     Route: 065
  15. OXYGEN [Concomitant]
     Route: 065

REACTIONS (2)
  - Tumour haemorrhage [Recovered/Resolved]
  - Adenocarcinoma of colon [Recovered/Resolved]
